FAERS Safety Report 13684981 (Version 2)
Quarter: 2017Q3

REPORT INFORMATION
  Report Type: Report from Study
  Country: ZW (occurrence: ZW)
  Receive Date: 20170623
  Receipt Date: 20170719
  Transmission Date: 20171127
  Serious: Yes (Hospitalization)
  Sender: FDA-Public Use
  Company Number: ZW-GILEAD-2017-0279194

PATIENT
  Age: 39 Year
  Sex: Male
  Weight: 64 kg

DRUGS (4)
  1. EFAVIRENZ/EMTRICITABINE/TENOFOVIR DISOPROXIL FUMARATE [Suspect]
     Active Substance: EFAVIRENZ\EMTRICITABINE\TENOFOVIR DISOPROXIL FUMARATE
     Indication: KAPOSI^S SARCOMA AIDS RELATED
     Dosage: 1 DF, QD
     Route: 048
     Dates: start: 20161129
  2. BLEOMYCIN [Suspect]
     Active Substance: BLEOMYCIN SULFATE
     Indication: KAPOSI^S SARCOMA AIDS RELATED
     Dosage: 27 UNITS, TIW, 6 CYCLES
     Route: 042
     Dates: start: 20161129, end: 20170315
  3. HEMATINIC                          /07652001/ [Concomitant]
  4. VINCRISTINE [Suspect]
     Active Substance: VINCRISTINE
     Indication: KAPOSI^S SARCOMA AIDS RELATED
     Dosage: 2 MG, TIW, 6 CYCLES
     Route: 042
     Dates: start: 20161129, end: 20170315

REACTIONS (1)
  - Anaemia [Recovered/Resolved]

NARRATIVE: CASE EVENT DATE: 20170608
